FAERS Safety Report 6267341-7 (Version None)
Quarter: 2009Q3

REPORT INFORMATION
  Report Type: 
  Country: None (occurrence: None)
  Receive Date: 20090714
  Receipt Date: 20090707
  Transmission Date: 20100115
  Serious: Yes (Hospitalization)
  Sender: FDA-Public Use
  Company Number: A0795738A

PATIENT
  Age: 51 Year
  Sex: Male

DRUGS (2)
  1. AVANDIA [Suspect]
     Dosage: 10MG PER DAY
     Route: 048
     Dates: start: 20070101
  2. ALTACE [Concomitant]

REACTIONS (2)
  - MYOCARDIAL INFARCTION [None]
  - OBSTRUCTION [None]
